FAERS Safety Report 12194619 (Version 3)
Quarter: 2018Q1

REPORT INFORMATION
  Report Type: Spontaneous
  Country: US (occurrence: US)
  Receive Date: 20160321
  Receipt Date: 20180119
  Transmission Date: 20180508
  Serious: No
  Sender: FDA-Public Use
  Company Number: US-PFIZER INC-2016162673

PATIENT
  Age: 94 Year
  Sex: Female

DRUGS (11)
  1. CELEBREX [Suspect]
     Active Substance: CELECOXIB
     Dosage: UNK
  2. NEURONTIN [Suspect]
     Active Substance: GABAPENTIN
     Dosage: UNK
  3. CALCIUM [Suspect]
     Active Substance: CALCIUM
     Dosage: UNK
  4. LATANOPROST. [Suspect]
     Active Substance: LATANOPROST
     Dosage: UNK
  5. CELECOXIB. [Suspect]
     Active Substance: CELECOXIB
     Dosage: UNK
  6. TIXOCORTOL PIVALATE [Suspect]
     Active Substance: TIXOCORTOL PIVALATE
     Dosage: UNK
  7. BACITRACIN. [Suspect]
     Active Substance: BACITRACIN
     Dosage: UNK
  8. TIXOCORTOL [Suspect]
     Active Substance: TIXOCORTOL PIVALATE
     Dosage: UNK
  9. COLCHICINE. [Suspect]
     Active Substance: COLCHICINE
     Dosage: UNK
  10. XALATAN [Suspect]
     Active Substance: LATANOPROST
     Dosage: UNK
  11. GABAPENTIN. [Suspect]
     Active Substance: GABAPENTIN
     Dosage: UNK

REACTIONS (1)
  - Drug hypersensitivity [Unknown]
